FAERS Safety Report 9531893 (Version 1)
Quarter: 2013Q3

REPORT INFORMATION
  Report Type: Spontaneous
  Country: FR (occurrence: FR)
  Receive Date: 20130918
  Receipt Date: 20130918
  Transmission Date: 20140515
  Serious: Yes (Death, Other)
  Sender: FDA-Public Use
  Company Number: FR-ROCHE-1274823

PATIENT
  Age: 47 Year
  Sex: Male
  Weight: 56 kg

DRUGS (8)
  1. PEGASYS [Suspect]
     Indication: HEPATITIS C
     Route: 058
     Dates: start: 20120328, end: 201209
  2. REBETOL [Suspect]
     Indication: HEPATITIS C
     Route: 048
     Dates: start: 20120328, end: 201209
  3. VICTRELIS [Suspect]
     Indication: HEPATITIS C
     Route: 048
     Dates: start: 20120425, end: 201209
  4. PARIET [Concomitant]
     Route: 065
     Dates: start: 2012
  5. TERCIAN [Concomitant]
     Route: 065
     Dates: start: 2012
  6. METHADONE HYDROCHLORIDE [Concomitant]
     Route: 065
     Dates: end: 2011
  7. SEROPLEX [Concomitant]
     Route: 065
     Dates: end: 2011
  8. LEXOMIL [Concomitant]
     Route: 065
     Dates: start: 2011

REACTIONS (2)
  - Suicide attempt [Fatal]
  - Coma [Fatal]
